FAERS Safety Report 19014095 (Version 1)
Quarter: 2021Q1

REPORT INFORMATION
  Report Type: Spontaneous
  Country: BR (occurrence: BR)
  Receive Date: 20210316
  Receipt Date: 20210316
  Transmission Date: 20210420
  Serious: Yes (Death)
  Sender: FDA-Public Use
  Company Number: BR-CUMBERLAND-2021-BR-000001

PATIENT
  Age: 75 Year
  Sex: Male

DRUGS (6)
  1. METOCLOPRAMIDE. [Concomitant]
     Active Substance: METOCLOPRAMIDE
     Route: 042
  2. KRISTALOSE [Suspect]
     Active Substance: LACTULOSE
  3. GLYCEROL [Concomitant]
     Active Substance: GLYCERIN
     Route: 054
  4. TRAMADOL. [Suspect]
     Active Substance: TRAMADOL
     Route: 042
  5. ACETAMINOPHEN. [Concomitant]
     Active Substance: ACETAMINOPHEN
  6. MORPHINE [Suspect]
     Active Substance: MORPHINE
     Route: 042

REACTIONS (2)
  - Drug ineffective [Not Recovered/Not Resolved]
  - Poisoning [Fatal]
